FAERS Safety Report 4554130-4 (Version None)
Quarter: 2005Q1

REPORT INFORMATION
  Report Type: 
  Country: None (occurrence: None)
  Receive Date: 20050118
  Receipt Date: 20050107
  Transmission Date: 20050727
  Serious: Yes (Other)
  Sender: FDA-Public Use
  Company Number: PHBS2005JP00700

PATIENT
  Age: 67 Year
  Sex: Male

DRUGS (3)
  1. ANAFRANIL [Suspect]
     Route: 042
  2. TOFRANIL [Suspect]
     Route: 048
  3. ANAFRANIL [Suspect]
     Route: 048

REACTIONS (1)
  - NEUROLEPTIC MALIGNANT SYNDROME [None]
